FAERS Safety Report 9390915 (Version 3)
Quarter: 2013Q4

REPORT INFORMATION
  Report Type: Spontaneous
  Country: US (occurrence: US)
  Receive Date: 20130709
  Receipt Date: 20131001
  Transmission Date: 20140711
  Serious: Yes (Other)
  Sender: FDA-Public Use
  Company Number: US-PFIZER INC-2013200274

PATIENT
  Age: 78 Year
  Sex: Female
  Weight: 63.5 kg

DRUGS (7)
  1. XANAX [Suspect]
     Indication: SLEEP DISORDER
     Dosage: 0.5 MG, DAILY AT NIGHT
  2. XANAX [Suspect]
     Indication: ANXIETY
     Dosage: UNK
  3. XANAX [Suspect]
     Indication: PANIC DISORDER
     Dosage: 0.25 MG (HALF TABLET OF 0.5 MG), 1X/DAY
     Route: 048
  4. CLONIDINE [Concomitant]
     Indication: HYPERTENSION
     Dosage: UNK, AS NEEDED
  5. CIPROFLOXACIN [Concomitant]
     Indication: CYSTITIS
     Dosage: UNK
  6. ADVIL [Concomitant]
     Indication: ARTHRALGIA
     Dosage: UNK
  7. ADVIL [Concomitant]
     Indication: ARTHRALGIA

REACTIONS (5)
  - Hallucination [Unknown]
  - Burning sensation [Recovering/Resolving]
  - Burning sensation [Unknown]
  - Middle insomnia [Unknown]
  - Off label use [Unknown]
